FAERS Safety Report 13731614 (Version 1)
Quarter: 2017Q3

REPORT INFORMATION
  Report Type: Spontaneous
  Country: TW (occurrence: TW)
  Receive Date: 20170707
  Receipt Date: 20170707
  Transmission Date: 20171127
  Serious: Yes (Other)
  Sender: FDA-Public Use
  Company Number: TW-BAUSCH-BL-2017-020698

PATIENT
  Sex: Male

DRUGS (4)
  1. LEUCOVORIN. [Suspect]
     Active Substance: LEUCOVORIN
     Indication: NASOPHARYNGEAL CANCER
     Route: 065
     Dates: start: 201412
  2. FLUOROURACIL. [Suspect]
     Active Substance: FLUOROURACIL
     Indication: NASOPHARYNGEAL CANCER
     Route: 065
     Dates: start: 201412
  3. CISPLATIN. [Suspect]
     Active Substance: CISPLATIN
     Indication: NASOPHARYNGEAL CANCER
     Route: 065
     Dates: start: 201412
  4. EPIRUBICIN [Suspect]
     Active Substance: EPIRUBICIN
     Indication: NASOPHARYNGEAL CANCER
     Route: 065
     Dates: start: 201412

REACTIONS (3)
  - Deep vein thrombosis [Unknown]
  - Nasopharyngeal cancer [Recovered/Resolved]
  - Stomatitis [Unknown]
